FAERS Safety Report 17458706 (Version 2)
Quarter: 2020Q1

REPORT INFORMATION
  Report Type: Report from Study
  Country: DE (occurrence: DE)
  Receive Date: 20200225
  Receipt Date: 20200324
  Transmission Date: 20200409
  Serious: Yes (Hospitalization)
  Sender: FDA-Public Use
  Company Number: DE-MYLANLABS-2020M1020050

PATIENT
  Age: 48 Year
  Sex: Female

DRUGS (2)
  1. BENEPALI [Suspect]
     Active Substance: ETANERCEPT
     Indication: RHEUMATOID ARTHRITIS
     Dosage: 50 MILLIGRAM EVERY 7 WEEKS
     Route: 065
  2. METHOTREXATE. [Suspect]
     Active Substance: METHOTREXATE
     Indication: PRODUCT USED FOR UNKNOWN INDICATION
     Dosage: 15 MILLIGRAM, QW
     Route: 065

REACTIONS (1)
  - Rheumatoid nodule [Recovered/Resolved]

NARRATIVE: CASE EVENT DATE: 20190702
